FAERS Safety Report 10262285 (Version 1)
Quarter: 2014Q2

REPORT INFORMATION
  Report Type: Spontaneous
  Country: US (occurrence: None)
  Receive Date: 20140624
  Receipt Date: 20140624
  Transmission Date: 20141212
  Serious: Yes (Other)
  Sender: FDA-Public Use
  Company Number: None

PATIENT
  Age: 70 Year
  Sex: Female
  Weight: 64.86 kg

DRUGS (13)
  1. ESTRADIOL [Suspect]
     Indication: HORMONE REPLACEMENT THERAPY
     Route: 048
     Dates: start: 19940601, end: 20140615
  2. LOVASTATIN [Concomitant]
  3. ESTRADIOL [Concomitant]
  4. LEVOTHRYOXINE [Concomitant]
  5. PROMETH/COD FOR ALLERGIES [Concomitant]
  6. MULTI VITAMIN [Concomitant]
  7. FOLIC ACID [Concomitant]
  8. VIT D3 [Concomitant]
  9. PHILLIPS COLON HEALTH [Concomitant]
  10. BIOTIN [Concomitant]
  11. GAS-X [Concomitant]
  12. ZYRTEC [Concomitant]
  13. PEPCID AS NEEDED [Concomitant]

REACTIONS (2)
  - Drug ineffective [None]
  - Product quality issue [None]
